FAERS Safety Report 10977295 (Version 1)
Quarter: 2015Q1

REPORT INFORMATION
  Report Type: Spontaneous
  Country: US (occurrence: None)
  Receive Date: 20150331
  Receipt Date: 20150331
  Transmission Date: 20150721
  Serious: Yes (Life-Threatening, Other)
  Sender: FDA-Public Use
  Company Number: 2015HIKLIT0301

PATIENT
  Age: 02 Week
  Sex: Female

DRUGS (1)
  1. SILDENAFIL (SILDENAFIL) UNKNOWN [Suspect]
     Active Substance: SILDENAFIL
     Indication: MALFORMATION VENOUS

REACTIONS (8)
  - Malformation venous [None]
  - Periorbital oedema [None]
  - Diarrhoea [None]
  - Therapeutic response decreased [None]
  - Pulmonary hypertension [None]
  - Exophthalmos [None]
  - Disease recurrence [None]
  - Hyperbilirubinaemia [None]
